FAERS Safety Report 24643041 (Version 2)
Quarter: 2024Q4

REPORT INFORMATION
  Report Type: Spontaneous
  Country: US (occurrence: US)
  Receive Date: 20241120
  Receipt Date: 20241225
  Transmission Date: 20250115
  Serious: No
  Sender: CSL BEHRING
  Company Number: US-BEH-2024185512

PATIENT
  Sex: Female
  Weight: 43.084 kg

DRUGS (1)
  1. HIZENTRA [Suspect]
     Active Substance: HUMAN IMMUNOGLOBULIN G
     Indication: Myasthenia gravis
     Dosage: STRENGHT: 20% PSS 4GM TOTAL, 16GM/80ML ONCE A WEEK
     Route: 058

REACTIONS (3)
  - Hepatitis A antibody positive [Unknown]
  - Misleading laboratory test result [Unknown]
  - Off label use [Unknown]
